FAERS Safety Report 7449664-9 (Version None)
Quarter: 2011Q2

REPORT INFORMATION
  Report Type: 
  Country: None (occurrence: None)
  Receive Date: 20110419
  Receipt Date: 20110404
  Transmission Date: 20111010
  Serious: Yes (Death, Other)
  Sender: FDA-Public Use
  Company Number: US-2011-10213

PATIENT
  Age: 72 Year
  Sex: Male

DRUGS (7)
  1. PHENYTOIN [Concomitant]
  2. FILGRASTIM (FILGRASTIM) [Concomitant]
  3. ANTI-THYMOCYTE GLOBULIN (ANTI-THYMOCYTE GLOBULIN) [Concomitant]
  4. TACROLIMUS [Concomitant]
  5. METHOTREXATE [Concomitant]
  6. BUSULFEX [Suspect]
     Indication: STEM CELL TRANSPLANT
  7. FLUDARABINE (FLUDARABINE PHOSPHATE) [Concomitant]

REACTIONS (1)
  - ACUTE GRAFT VERSUS HOST DISEASE [None]
